APPROVED DRUG PRODUCT: FENTANYL CITRATE AND DROPERIDOL
Active Ingredient: DROPERIDOL; FENTANYL CITRATE
Strength: 2.5MG/ML;EQ 0.05MG BASE/ML
Dosage Form/Route: INJECTABLE;INJECTION
Application: A072028 | Product #001
Applicant: ASTRAZENECA LP
Approved: Apr 13, 1989 | RLD: No | RS: No | Type: DISCN